FAERS Safety Report 8120201-9 (Version None)
Quarter: 2012Q1

REPORT INFORMATION
  Report Type: 
  Country: None (occurrence: None)
  Receive Date: 20120207
  Receipt Date: 20120201
  Transmission Date: 20120608
  Serious: Yes (Life-Threatening)
  Sender: FDA-Public Use
  Company Number: TW-ROXANE LABORATORIES, INC.-2012-RO-00573RO

PATIENT
  Age: 61 Year
  Sex: Female

DRUGS (3)
  1. ALTEPLASE [Suspect]
     Indication: ISCHAEMIC STROKE
     Route: 042
  2. ALTEPLASE [Suspect]
     Route: 042
  3. RAMIPRIL [Suspect]
     Indication: HYPERTENSION

REACTIONS (2)
  - ISCHAEMIC STROKE [None]
  - ANAPHYLACTOID SHOCK [None]
